FAERS Safety Report 4307046-2 (Version None)
Quarter: 2004Q1

REPORT INFORMATION
  Report Type: 
  Country: None (occurrence: None)
  Receive Date: 20040225
  Receipt Date: 20040205
  Transmission Date: 20041129
  Serious: Yes (Congenital Anomaly)
  Sender: FDA-Public Use
  Company Number: FR_040203546

PATIENT
  Age: 1 Day
  Sex: Male

DRUGS (5)
  1. PROZAC [Suspect]
  2. GYNERGENE (ERGOTAMINE TARTRATE) [Concomitant]
  3. OPTALIDON (IBUPROFEN) [Concomitant]
  4. NOCTRAN [Concomitant]
  5. SEGLOR (DIHYDROERGOTAMINE MALEATE) [Concomitant]

REACTIONS (4)
  - CLEFT LIP [None]
  - CONGENITAL ANOMALY [None]
  - MATERNAL DRUGS AFFECTING FOETUS [None]
  - PREMATURE BABY [None]
